FAERS Safety Report 25204291 (Version 1)
Quarter: 2025Q2

REPORT INFORMATION
  Report Type: Spontaneous
  Country: US (occurrence: US)
  Receive Date: 20250416
  Receipt Date: 20250416
  Transmission Date: 20250717
  Serious: No
  Sender: ELI LILLY AND CO
  Company Number: US-ELI_LILLY_AND_COMPANY-US202504013684

PATIENT
  Age: 65 Year
  Sex: Male

DRUGS (2)
  1. HUMATROPE [Suspect]
     Active Substance: SOMATROPIN
     Indication: Product used for unknown indication
     Route: 065
  2. HUMATROPE [Suspect]
     Active Substance: SOMATROPIN
     Route: 065

REACTIONS (2)
  - Incorrect dose administered [Unknown]
  - Wrong technique in product usage process [Unknown]
